FAERS Safety Report 21031953 (Version 2)
Quarter: 2022Q3

REPORT INFORMATION
  Report Type: Report from Study
  Country: CA (occurrence: CA)
  Receive Date: 20220701
  Receipt Date: 20220809
  Transmission Date: 20221027
  Serious: Yes (Other)
  Sender: FDA-Public Use
  Company Number: CA-ABBVIE-22K-028-4451122-00

PATIENT
  Age: 37 Year
  Sex: Male

DRUGS (1)
  1. SKYRIZI [Suspect]
     Active Substance: RISANKIZUMAB-RZAA
     Indication: Psoriasis
     Route: 058
     Dates: start: 20220621

REACTIONS (2)
  - Presyncope [Recovered/Resolved]
  - Lacrimation increased [Unknown]

NARRATIVE: CASE EVENT DATE: 20220621
